FAERS Safety Report 16429010 (Version 1)
Quarter: 2019Q2

REPORT INFORMATION
  Report Type: Report from Study
  Country: None (occurrence: US)
  Receive Date: 20190614
  Receipt Date: 20190614
  Transmission Date: 20190711
  Serious: Yes (Other)
  Sender: FDA-Public Use
  Company Number: US-ABBVIE-19K-163-2637462-00

PATIENT
  Age: 61 Year
  Sex: Female

DRUGS (1)
  1. HUMIRA [Suspect]
     Active Substance: ADALIMUMAB
     Indication: COLITIS ULCERATIVE
     Route: 058
     Dates: start: 201702

REACTIONS (7)
  - Retinal detachment [Unknown]
  - Eczema [Unknown]
  - Paranasal sinus discomfort [Unknown]
  - Alopecia [Unknown]
  - Clostridium difficile infection [Recovered/Resolved]
  - Skin disorder [Unknown]
  - Sinus congestion [Unknown]

NARRATIVE: CASE EVENT DATE: 201901
